FAERS Safety Report 8788398 (Version 1)
Quarter: 2012Q4

REPORT INFORMATION
  Report Type: Report from Study
  Country: US (occurrence: US)
  Receive Date: 20120914
  Receipt Date: 20120914
  Transmission Date: 20130627
  Serious: No
  Sender: FDA-Public Use
  Company Number: US-VERTEX PHARMACEUTICAL INC.-AE-2012-011171

PATIENT
  Sex: Male
  Weight: 96.2 kg

DRUGS (4)
  1. INCIVEK [Suspect]
     Indication: HEPATITIS C
     Route: 048
     Dates: start: 20120719
  2. PEGASYS [Concomitant]
     Indication: HEPATITIS C
     Route: 058
     Dates: start: 20120719
  3. RIBASPHERE [Concomitant]
     Indication: HEPATITIS C
     Dates: start: 20120719
  4. METOPROLOL TARTRATE [Concomitant]
     Route: 048
     Dates: start: 201207

REACTIONS (3)
  - Influenza like illness [Unknown]
  - Fatigue [Unknown]
  - Haemorrhoidal haemorrhage [Unknown]
